FAERS Safety Report 6670587-7 (Version None)
Quarter: 2010Q2

REPORT INFORMATION
  Report Type: 
  Country: None (occurrence: None)
  Receive Date: 20100407
  Receipt Date: 20091218
  Transmission Date: 20101027
  Serious: Yes (Hospitalization, Other)
  Sender: FDA-Public Use
  Company Number: DE-JNJFOC-20091001214

PATIENT
  Age: 61 Year
  Sex: Female

DRUGS (11)
  1. TAVANIC [Suspect]
     Indication: CYSTITIS
     Route: 048
     Dates: start: 20090801, end: 20090801
  2. FURADANTIN [Suspect]
     Indication: CYSTITIS
     Route: 048
     Dates: start: 20090810, end: 20090817
  3. SAB SIMPLEX [Concomitant]
     Route: 048
  4. FORADIL [Concomitant]
     Route: 055
  5. SPIRIVA [Concomitant]
     Route: 055
  6. ASTONIN H [Concomitant]
     Route: 048
  7. THYRONAJOD [Concomitant]
     Route: 048
  8. OMEPRAZOLE [Concomitant]
     Route: 048
  9. DICLOFENAC [Concomitant]
     Route: 048
  10. KRAEUTERLAX [Concomitant]
     Route: 048
  11. MOTILIUM [Concomitant]
     Route: 048

REACTIONS (7)
  - ANGIOEDEMA [None]
  - DYSPNOEA [None]
  - ECZEMA [None]
  - OEDEMA PERIPHERAL [None]
  - PAIN IN EXTREMITY [None]
  - RASH MACULO-PAPULAR [None]
  - TENDON PAIN [None]
